FAERS Safety Report 19883916 (Version 1)
Quarter: 2021Q3

REPORT INFORMATION
  Report Type: Spontaneous
  Country: US (occurrence: US)
  Receive Date: 20210927
  Receipt Date: 20210927
  Transmission Date: 20211014
  Serious: No
  Sender: FDA-Public Use
  Company Number: US-JNJFOC-20210933696

PATIENT
  Age: 71 Year
  Sex: Male
  Weight: 100 kg

DRUGS (14)
  1. CARVEDILOL. [Concomitant]
     Active Substance: CARVEDILOL
  2. AMLODIPINE [Concomitant]
     Active Substance: AMLODIPINE BESYLATE
  3. FUROSEMIDE. [Concomitant]
     Active Substance: FUROSEMIDE
  4. TRAZODONE [Concomitant]
     Active Substance: TRAZODONE HYDROCHLORIDE
  5. SIMPONI ARIA [Suspect]
     Active Substance: GOLIMUMAB
     Indication: ANKYLOSING SPONDYLITIS
     Dosage: 5 UNITS
     Route: 042
     Dates: start: 20210915
  6. LOSARTAN. [Concomitant]
     Active Substance: LOSARTAN
  7. TRAMADOL. [Concomitant]
     Active Substance: TRAMADOL
  8. DIPHENHYDRAMINE. [Concomitant]
     Active Substance: DIPHENHYDRAMINE
  9. PREGABALIN. [Concomitant]
     Active Substance: PREGABALIN
  10. LIALDA [Concomitant]
     Active Substance: MESALAMINE
  11. METHOTREXATE. [Concomitant]
     Active Substance: METHOTREXATE
  12. HYDROXYCHLOROQUINE [Concomitant]
     Active Substance: HYDROXYCHLOROQUINE
  13. METFORMIN [Concomitant]
     Active Substance: METFORMIN HYDROCHLORIDE
  14. CETIRIZINE [Concomitant]
     Active Substance: CETIRIZINE HYDROCHLORIDE

REACTIONS (2)
  - Product dose omission issue [Unknown]
  - Vascular access complication [Unknown]

NARRATIVE: CASE EVENT DATE: 20210915
